FAERS Safety Report 17988322 (Version 1)
Quarter: 2020Q3

REPORT INFORMATION
  Report Type: Spontaneous
  Country: US (occurrence: US)
  Receive Date: 20200706
  Receipt Date: 20200706
  Transmission Date: 20201103
  Serious: Yes (Death)
  Sender: FDA-Public Use
  Company Number: None

PATIENT
  Age: 58 Year
  Sex: Male

DRUGS (22)
  1. DRONABINOL. [Concomitant]
     Active Substance: DRONABINOL
  2. FENONIBRATE [Concomitant]
  3. METHADONE [Concomitant]
     Active Substance: METHADONE HYDROCHLORIDE
  4. OLMESA MEDOX [Concomitant]
  5. PREDNISONE. [Concomitant]
     Active Substance: PREDNISONE
  6. TESTOST CYP [Concomitant]
     Active Substance: TESTOSTERONE CYPIONATE
  7. CARVEDILOL. [Concomitant]
     Active Substance: CARVEDILOL
  8. HYDROMORPHON [Concomitant]
     Active Substance: HYDROMORPHONE
  9. LOSARTAN POT [Concomitant]
     Active Substance: LOSARTAN POTASSIUM
  10. MORPHINE SUL [Concomitant]
     Active Substance: MORPHINE SULFATE
  11. PROCTOFOAM AER [Concomitant]
  12. COLLAGENASE SANTYL [Concomitant]
     Active Substance: COLLAGENASE CLOSTRIDIUM HISTOLYTICUM
  13. VALSARTAN. [Concomitant]
     Active Substance: VALSARTAN
  14. NARCAN [Concomitant]
     Active Substance: NALOXONE HYDROCHLORIDE
  15. AMLODIPINE [Concomitant]
     Active Substance: AMLODIPINE BESYLATE
  16. OXYCODONE [Concomitant]
     Active Substance: OXYCODONE
  17. EVEROLIMUS 5MG (7 TAB/CARD) [Suspect]
     Active Substance: EVEROLIMUS
     Indication: RENAL CANCER
     Route: 048
     Dates: start: 20200219, end: 20200619
  18. LENVIMA [Concomitant]
     Active Substance: LENVATINIB
  19. OLANZAPINE. [Concomitant]
     Active Substance: OLANZAPINE
  20. OMEGA?3 ACID [Concomitant]
  21. CALCIUM /D3 [Concomitant]
  22. CYPROHEPTAD [Concomitant]

REACTIONS (1)
  - Death [None]

NARRATIVE: CASE EVENT DATE: 20200619
